FAERS Safety Report 19092024 (Version 2)
Quarter: 2021Q2

REPORT INFORMATION
  Report Type: Spontaneous
  Country: ES (occurrence: ES)
  Receive Date: 20210405
  Receipt Date: 20210518
  Transmission Date: 20210717
  Serious: Yes (Other)
  Sender: FDA-Public Use
  Company Number: ES-PFIZER INC-2021317274

PATIENT
  Age: 11 Year
  Sex: Female
  Weight: 25 kg

DRUGS (2)
  1. FILGRASTIM [Suspect]
     Active Substance: FILGRASTIM
     Indication: HAEMATOPOIETIC STEM CELL MOBILISATION
     Dosage: 12 MICROGRAM/KILOGRAM, BID (FOR 4 DAYS)
     Route: 065
  2. PLERIXAFOR [Concomitant]
     Active Substance: PLERIXAFOR
     Indication: HAEMATOPOIETIC STEM CELL MOBILISATION
     Dosage: 240 MICROGRAM/KILOGRAM
     Route: 065

REACTIONS (3)
  - Bone pain [Unknown]
  - Condition aggravated [Unknown]
  - Treatment failure [Unknown]
